FAERS Safety Report 11882602 (Version 1)
Quarter: 2015Q4

REPORT INFORMATION
  Report Type: Spontaneous
  Country: US (occurrence: None)
  Receive Date: 20151230
  Receipt Date: 20151230
  Transmission Date: 20160305
  Serious: Yes (Life-Threatening, Hospitalization)
  Sender: FDA-Public Use
  Company Number: None

PATIENT
  Age: 27 Year
  Sex: Male

DRUGS (1)
  1. INVEGA SUSTENNA [Suspect]
     Active Substance: PALIPERIDONE PALMITATE
     Indication: CATATONIA
     Dosage: MONTHLYAFTERUPLOAD
     Dates: start: 20141117, end: 20141217

REACTIONS (15)
  - Tremor [None]
  - Speech disorder [None]
  - Perseveration [None]
  - Musculoskeletal stiffness [None]
  - Confusional state [None]
  - Coma [None]
  - Asthenia [None]
  - Activities of daily living impaired [None]
  - Restlessness [None]
  - Pain in extremity [None]
  - Fear [None]
  - Judgement impaired [None]
  - Muscle disorder [None]
  - Aggression [None]
  - Somnolence [None]

NARRATIVE: CASE EVENT DATE: 20131117
